FAERS Safety Report 17226444 (Version 2)
Quarter: 2021Q3

REPORT INFORMATION
  Report Type: Spontaneous
  Country: US (occurrence: US)
  Receive Date: 20200102
  Receipt Date: 20210818
  Transmission Date: 20211014
  Serious: Yes (Hospitalization)
  Sender: FDA-Public Use
  Company Number: US-VIFOR (INTERNATIONAL) INC.-VIT-2016-07962

PATIENT
  Age: 79 Year
  Sex: Female

DRUGS (5)
  1. LABETALOL HYDROCHLORIDE. [Concomitant]
     Active Substance: LABETALOL HYDROCHLORIDE
  2. VELTASSA [Suspect]
     Active Substance: PATIROMER
     Indication: HYPERKALAEMIA
     Route: 048
  3. PANADEINE CO [Concomitant]
     Active Substance: ACETAMINOPHEN\CODEINE PHOSPHATE
  4. TUMS [Concomitant]
     Active Substance: CALCIUM CARBONATE
  5. VELTASSA [Suspect]
     Active Substance: PATIROMER
     Route: 048

REACTIONS (8)
  - Fall [Unknown]
  - Blood potassium decreased [Unknown]
  - Upper limb fracture [Unknown]
  - Hip arthroplasty [Unknown]
  - Off label use [Unknown]
  - Product dose omission issue [Unknown]
  - Flatulence [Unknown]
  - Nausea [Unknown]

NARRATIVE: CASE EVENT DATE: 20161114
